FAERS Safety Report 6828532-7 (Version None)
Quarter: 2010Q3

REPORT INFORMATION
  Report Type: 
  Country: None (occurrence: None)
  Receive Date: 20100708
  Receipt Date: 20100708
  Transmission Date: 20110219
  Serious: Yes (Other)
  Sender: FDA-Public Use
  Company Number: None

PATIENT
  Age: 44 Year
  Sex: Female
  Weight: 69.4003 kg

DRUGS (1)
  1. ZYPREXA [Suspect]
     Indication: INSOMNIA
     Dosage: 5MG QHS PO
     Route: 048

REACTIONS (4)
  - CONTUSION [None]
  - GAIT DISTURBANCE [None]
  - NO THERAPEUTIC RESPONSE [None]
  - OEDEMA PERIPHERAL [None]
